FAERS Safety Report 7396559-5 (Version None)
Quarter: 2011Q1

REPORT INFORMATION
  Report Type: 
  Country: None (occurrence: None)
  Receive Date: 20110328
  Receipt Date: 20110314
  Transmission Date: 20110831
  Serious: Yes (Other)
  Sender: FDA-Public Use
  Company Number: 1000019382

PATIENT
  Age: 52 Year
  Sex: Female

DRUGS (7)
  1. PANTOPRAZOLE [Suspect]
     Indication: PROPHYLAXIS AGAINST GASTROINTESTINAL ULCER
     Dosage: 40 MG (40 MG, 1 IN 1 D), ORAL, 20 MG (40 MG, 1 IN 2 D), ORAL
     Route: 048
  2. VALORON (TILIDINE HYDROCHLORIDE, NALOXONE)(TILIDINE HYDROCHLORIDE, NAL [Concomitant]
  3. DIPIPERON (PIPAMPERONE HYDROCHLORIDE) (40 MILLIGRAM)(PIPAMPERONE HYDRO [Concomitant]
  4. ESCITALOPRAM [Suspect]
     Indication: DEPRESSION
     Dosage: 10 MG (10 MG, 1 N 1 D), ORAL
     Route: 048
  5. PARACETAMOL (PARACETAMOL) (PARACETAMOL) [Concomitant]
  6. LOPRESOR (METOPROLOL TARTRATE) (METOPROLOL TARTRATE) [Concomitant]
  7. TAVOR (LORAZEPAM) (1 MILLIARAM) (LORAZFPAM) [Concomitant]

REACTIONS (1)
  - CHOLESTASIS [None]
